FAERS Safety Report 5871278-2 (Version None)
Quarter: 2008Q3

REPORT INFORMATION
  Report Type: 
  Country: None (occurrence: None)
  Receive Date: 20080904
  Receipt Date: 20080904
  Transmission Date: 20090109
  Serious: Yes (Hospitalization)
  Sender: FDA-Public Use
  Company Number: None

PATIENT
  Sex: Female
  Weight: 58.9676 kg

DRUGS (1)
  1. METOPROLOL TARTRATE [Suspect]
     Indication: HYPERTENSION
     Dosage: 25 MG. 1 TABLET EVERY 8 HRS.
     Dates: start: 20080722, end: 20080801

REACTIONS (2)
  - BLOOD PRESSURE INCREASED [None]
  - SENSATION OF BLOOD FLOW [None]
